FAERS Safety Report 20825534 (Version 1)
Quarter: 2022Q2

REPORT INFORMATION
  Report Type: Spontaneous
  Country: FR (occurrence: FR)
  Receive Date: 20220513
  Receipt Date: 20220513
  Transmission Date: 20220720
  Serious: Yes (Death)
  Sender: FDA-Public Use
  Company Number: None

PATIENT
  Age: 28 Year
  Sex: Male

DRUGS (1)
  1. TRAMADOL HYDROCHLORIDE [Suspect]
     Active Substance: TRAMADOL HYDROCHLORIDE
     Dosage: UNKNOWN, TRAMADOL (CHLORHYDRATE DE)
     Route: 065
     Dates: end: 202108

REACTIONS (2)
  - Pneumonitis aspiration [Fatal]
  - Poisoning deliberate [Fatal]
